FAERS Safety Report 19960028 (Version 1)
Quarter: 2021Q4

REPORT INFORMATION
  Report Type: Spontaneous
  Country: US (occurrence: US)
  Receive Date: 20211015
  Receipt Date: 20211015
  Transmission Date: 20220303
  Serious: No
  Sender: FDA-Public Use
  Company Number: None

PATIENT
  Age: 70 Year
  Sex: Male

DRUGS (17)
  1. MYCOPHENOLIC ACID [Suspect]
     Active Substance: MYCOPHENOLIC ACID
     Indication: Renal transplant
     Route: 048
     Dates: start: 20160805
  2. TACROLIMUS [Suspect]
     Active Substance: TACROLIMUS
     Route: 048
     Dates: start: 20180821
  3. AMLODIPINE [Concomitant]
     Active Substance: AMLODIPINE BESYLATE
  4. ASPIRIN [Concomitant]
     Active Substance: ASPIRIN
  5. BRIMONIDINE [Concomitant]
     Active Substance: BRIMONIDINE TARTRATE
  6. CLONIDINE [Concomitant]
     Active Substance: CLONIDINE
  7. DORZOLAMIDE [Concomitant]
     Active Substance: DORZOLAMIDE
  8. DOXAZOSIN [Concomitant]
     Active Substance: DOXAZOSIN MESYLATE
  9. GABAPENTIN [Concomitant]
     Active Substance: GABAPENTIN
  10. HUMALOG [Concomitant]
     Active Substance: INSULIN LISPRO
  11. KIONEX [Concomitant]
     Active Substance: SODIUM POLYSTYRENE SULFONATE
  12. LABETALOL [Concomitant]
     Active Substance: LABETALOL\LABETALOL HYDROCHLORIDE
  13. LANTUS [Concomitant]
     Active Substance: INSULIN GLARGINE
  14. LATANOPROST [Concomitant]
     Active Substance: LATANOPROST
  15. PLAVIX [Concomitant]
     Active Substance: CLOPIDOGREL BISULFATE
  16. PRILOSEC [Concomitant]
     Active Substance: OMEPRAZOLE MAGNESIUM
  17. TIMOLOL [Concomitant]
     Active Substance: TIMOLOL

REACTIONS (1)
  - Toe amputation [None]

NARRATIVE: CASE EVENT DATE: 20211001
